FAERS Safety Report 19252858 (Version 2)
Quarter: 2021Q2

REPORT INFORMATION
  Report Type: Spontaneous
  Country: US (occurrence: US)
  Receive Date: 20210513
  Receipt Date: 20210611
  Transmission Date: 20210717
  Serious: No
  Sender: FDA-Public Use
  Company Number: US-ASTRAZENECA-2021A366443

PATIENT
  Sex: Male
  Weight: 91.2 kg

DRUGS (1)
  1. BYDUREON [Suspect]
     Active Substance: EXENATIDE
     Indication: DIABETES MELLITUS
     Route: 058

REACTIONS (4)
  - Product packaging quantity issue [Unknown]
  - Discomfort [Unknown]
  - Device leakage [Unknown]
  - Visual impairment [Unknown]
